FAERS Safety Report 5188332-3 (Version None)
Quarter: 2006Q4

REPORT INFORMATION
  Report Type: 
  Country: None (occurrence: None)
  Receive Date: 20061221
  Receipt Date: 20060823
  Transmission Date: 20070319
  Serious: Yes (Other)
  Sender: FDA-Public Use
  Company Number: DE-ELI_LILLY_AND_COMPANY-DE200608005188

PATIENT
  Age: 73 Year
  Sex: Female

DRUGS (5)
  1. FORTEO [Suspect]
     Indication: OSTEOPOROSIS
     Dosage: 20 UG, DAILY (1/D)
     Route: 058
     Dates: start: 20060101, end: 20060831
  2. OMEPRAZOLE [Concomitant]
  3. BISOPROLOL FUMARATE [Concomitant]
  4. VIGANTOLETTEN [Concomitant]
  5. CALCIUM-SANDOZ 1000 [Concomitant]
     Dosage: 1000 MG, UNK

REACTIONS (5)
  - ARTHRALGIA [None]
  - BONE PAIN [None]
  - BREAST HAEMORRHAGE [None]
  - FATIGUE [None]
  - HYPERHIDROSIS [None]
